FAERS Safety Report 5155522-5 (Version None)
Quarter: 2006Q4

REPORT INFORMATION
  Report Type: 
  Country: None (occurrence: None)
  Receive Date: 20061114
  Receipt Date: 20061101
  Transmission Date: 20070319
  Serious: Yes (Other)
  Sender: FDA-Public Use
  Company Number: 2006056777

PATIENT
  Sex: Male
  Weight: 85.7298 kg

DRUGS (5)
  1. XALATAN [Suspect]
     Indication: GLAUCOMA
     Dosage: 1 DROP (1 DROP, 1 IN 1D), OPHTHALMIC
     Route: 047
  2. ASPIRIN [Concomitant]
  3. XAL-EASE [Concomitant]
  4. ALLEGRA [Concomitant]
  5. CLARITIN [Concomitant]

REACTIONS (3)
  - ARTHRITIS [None]
  - CONDITION AGGRAVATED [None]
  - INTRAOCULAR PRESSURE INCREASED [None]
